FAERS Safety Report 7397841-8 (Version None)
Quarter: 2011Q2

REPORT INFORMATION
  Report Type: 
  Country: None (occurrence: None)
  Receive Date: 20110406
  Receipt Date: 20110328
  Transmission Date: 20111010
  Serious: Yes (Hospitalization, Disabling, Other)
  Sender: FDA-Public Use
  Company Number: BR-SANOFI-AVENTIS-2011SA019205

PATIENT
  Sex: Female
  Weight: 64 kg

DRUGS (14)
  1. METICORTEN [Suspect]
     Indication: ASTHMATIC CRISIS
     Route: 048
     Dates: start: 20110301, end: 20110301
  2. LOSARTAN POTASSIUM [Concomitant]
     Indication: HYPERTENSION
     Route: 048
  3. DILACORON [Concomitant]
     Route: 048
  4. LANTUS [Suspect]
     Indication: TYPE 1 DIABETES MELLITUS
     Route: 058
  5. SOLOSTAR [Suspect]
  6. GABAPENTIN [Concomitant]
     Indication: DIABETIC NEUROPATHY
     Route: 048
  7. APIDRA [Suspect]
     Indication: TYPE 1 DIABETES MELLITUS
     Route: 058
  8. PURAN T4 [Concomitant]
     Indication: THYROID DISORDER
     Route: 048
  9. METICORTEN [Suspect]
     Route: 048
     Dates: start: 20110301
  10. FORASEQ [Concomitant]
     Route: 055
  11. ALL OTHER THERAPEUTIC PRODUCTS [Concomitant]
     Route: 048
  12. ALL OTHER THERAPEUTIC PRODUCTS [Suspect]
     Indication: ASTHMATIC CRISIS
  13. ANTIBIOTICS [Suspect]
  14. AMLODIPINE [Concomitant]
     Indication: HYPERTENSION
     Route: 048

REACTIONS (8)
  - DIABETIC NEUROPATHY [None]
  - COUGH [None]
  - GLYCOSYLATED HAEMOGLOBIN INCREASED [None]
  - ASTHMA [None]
  - LUNG DISORDER [None]
  - GAIT DISTURBANCE [None]
  - ATRIAL FIBRILLATION [None]
  - HYPERGLYCAEMIA [None]
